FAERS Safety Report 15483253 (Version 2)
Quarter: 2018Q4

REPORT INFORMATION
  Report Type: Spontaneous
  Country: US (occurrence: US)
  Receive Date: 20181010
  Receipt Date: 20181029
  Transmission Date: 20190205
  Serious: No
  Sender: FDA-Public Use
  Company Number: US-TEVA-2018-US-961173

PATIENT
  Sex: Male

DRUGS (1)
  1. CLONIDINE ACTAVIS [Suspect]
     Active Substance: CLONIDINE
     Indication: BLOOD PRESSURE INCREASED
     Route: 065
     Dates: start: 201809

REACTIONS (2)
  - Drug ineffective [Unknown]
  - Burning sensation [Unknown]
